FAERS Safety Report 7657227-5 (Version None)
Quarter: 2011Q3

REPORT INFORMATION
  Report Type: 
  Country: None (occurrence: None)
  Receive Date: 20110804
  Receipt Date: 20110801
  Transmission Date: 20111222
  Serious: Yes (Hospitalization)
  Sender: FDA-Public Use
  Company Number: US-SANOFI-AVENTIS-2011SA049018

PATIENT
  Age: 72 Year
  Sex: Male
  Weight: 81.8 kg

DRUGS (3)
  1. PLAVIX [Suspect]
     Indication: STENT PLACEMENT
     Route: 048
     Dates: start: 20090101
  2. MULTAQ [Suspect]
     Indication: HEART RATE INCREASED
     Route: 048
     Dates: start: 20100101
  3. PLAVIX [Suspect]
     Indication: PROPHYLAXIS
     Route: 048
     Dates: start: 20090101

REACTIONS (1)
  - HEART RATE INCREASED [None]
